FAERS Safety Report 4843865-1 (Version None)
Quarter: 2005Q4

REPORT INFORMATION
  Report Type: 
  Country: None (occurrence: None)
  Receive Date: 20051130
  Receipt Date: 20051130
  Transmission Date: 20060501
  Serious: No
  Sender: FDA-Public Use
  Company Number: None

PATIENT
  Age: 70 Year
  Sex: Male
  Weight: 93 kg

DRUGS (2)
  1. LOSARTAN POTASSIUM [Suspect]
     Indication: HYPERTENSION
     Dosage: 75 MG PO QD
     Route: 048
     Dates: start: 20051004, end: 20051102
  2. LOSARTAN POTASSIUM [Suspect]

REACTIONS (1)
  - MYALGIA [None]
